FAERS Safety Report 10758181 (Version 1)
Quarter: 2015Q1

REPORT INFORMATION
  Report Type: Spontaneous
  Country: US (occurrence: None)
  Receive Date: 20150202
  Receipt Date: 20150202
  Transmission Date: 20150721
  Serious: Yes (Life-Threatening, Hospitalization, Disabling, Other)
  Sender: FDA-Public Use
  Company Number: None

PATIENT
  Age: 39 Year
  Sex: Male
  Weight: 71.67 kg

DRUGS (9)
  1. PERCOCET [Concomitant]
     Active Substance: ACETAMINOPHEN\OXYCODONE HYDROCHLORIDE
  2. ALPRAZOLAM TAB [Concomitant]
  3. INVEGA [Suspect]
     Active Substance: PALIPERIDONE
     Dosage: 9 MG, 1 PILL DAILY, 1 PILL DAILY, BY MOUTH?3 MG, 1 PILL DAILY, 1 PILL DAILY, BY MOUTH = 12 MG?NDC# FOR 3 MG IS 50458-550-98
     Route: 048
     Dates: start: 20131003, end: 20150107
  4. CLONAZEPAM. [Concomitant]
     Active Substance: CLONAZEPAM
  5. ABILIFY AROPIPRAZOLE TAB?? [Concomitant]
  6. LOW DOSE ASPIRIN [Concomitant]
     Active Substance: ASPIRIN
  7. CLOPIDOGREL TAB [Concomitant]
  8. ATROVASTATIN TAB [Concomitant]
  9. METOPROLOL TARTATE [Concomitant]
     Active Substance: METOPROLOL TARTRATE

REACTIONS (3)
  - Ill-defined disorder [None]
  - Cerebrovascular accident [None]
  - Blood cholesterol increased [None]

NARRATIVE: CASE EVENT DATE: 20150107
